FAERS Safety Report 7212441-8 (Version None)
Quarter: 2011Q1

REPORT INFORMATION
  Report Type: 
  Country: None (occurrence: None)
  Receive Date: 20110106
  Receipt Date: 20110103
  Transmission Date: 20110831
  Serious: Yes (Hospitalization)
  Sender: FDA-Public Use
  Company Number: US-JNJFOC-20110100419

PATIENT
  Sex: Male
  Weight: 62.5 kg

DRUGS (6)
  1. INFLIXIMAB, RECOMBINANT [Suspect]
     Route: 042
  2. SOLU-MEDROL [Concomitant]
     Indication: PREMEDICATION
  3. PREDNISONE [Concomitant]
  4. CIPRO [Concomitant]
  5. INFLIXIMAB, RECOMBINANT [Suspect]
     Indication: CROHN'S DISEASE
     Dosage: 3RD INFUSION
     Route: 042
  6. MESALAMINE [Concomitant]
     Route: 048

REACTIONS (1)
  - CROHN'S DISEASE [None]
